FAERS Safety Report 8906209 (Version 1)
Quarter: 2012Q4

REPORT INFORMATION
  Report Type: Spontaneous
  Country: US (occurrence: None)
  Receive Date: 20121112
  Receipt Date: 20121112
  Transmission Date: 20130627
  Serious: Yes (Disabling)
  Sender: FDA-Public Use
  Company Number: None

PATIENT
  Age: 71 Year
  Sex: Female
  Weight: 15.88 kg

DRUGS (2)
  1. FISH OIL [Suspect]
     Indication: BLOOD CHOLESTEROL ABNORMAL
     Dosage: 2000 mg   once a day  po
     Route: 048
     Dates: start: 19900101, end: 20121030
  2. FLAXSEED OIL [Suspect]
     Indication: BLOOD CHOLESTEROL ABNORMAL
     Dosage: 2400 mg  once a day  po
     Route: 048
     Dates: start: 20000101, end: 20121030

REACTIONS (1)
  - Neuropathy peripheral [None]
